FAERS Safety Report 4805334-4 (Version None)
Quarter: 2005Q4

REPORT INFORMATION
  Report Type: 
  Country: None (occurrence: None)
  Receive Date: 20051017
  Receipt Date: 20050929
  Transmission Date: 20060501
  Serious: Yes (Death, Hospitalization)
  Sender: FDA-Public Use
  Company Number: 2005PL000078

PATIENT
  Age: 55 Year
  Sex: Female

DRUGS (3)
  1. IMURAN [Suspect]
     Indication: CROHN'S DISEASE
     Dosage: 50 MG;QD;PO
     Route: 048
     Dates: start: 20040101, end: 20050101
  2. INFLIXIMAB [Suspect]
     Indication: PYODERMA GANGRENOSUM
     Dosage: 450 MG;1X; IV
     Route: 042
     Dates: start: 20041201, end: 20041201
  3. PREDNISONE [Suspect]
     Indication: CROHN'S DISEASE
     Dosage: 30MG;BID;PO
     Route: 048
     Dates: end: 20041201

REACTIONS (12)
  - ASPERGILLOSIS [None]
  - BRAIN MASS [None]
  - CANDIDIASIS [None]
  - CEREBRAL ISCHAEMIA [None]
  - COMA [None]
  - IMMUNOSUPPRESSION [None]
  - MULTI-ORGAN FAILURE [None]
  - OCCULT BLOOD POSITIVE [None]
  - PERICARDITIS [None]
  - RESPIRATORY FAILURE [None]
  - SHIFT TO THE LEFT [None]
  - SPUTUM CULTURE POSITIVE [None]
